FAERS Safety Report 8494623-0 (Version None)
Quarter: 2012Q3

REPORT INFORMATION
  Report Type: 
  Country: None (occurrence: None)
  Receive Date: 20120709
  Receipt Date: 20120627
  Transmission Date: 20120928
  Serious: Yes (Hospitalization)
  Sender: FDA-Public Use
  Company Number: JP-UCBSA-038314

PATIENT
  Age: 67 Year
  Sex: Female

DRUGS (12)
  1. LAFUTIDINE [Concomitant]
     Dates: start: 20020410
  2. ETODOLAC [Concomitant]
     Dosage: DAILY DOSE:400MG.
     Dates: start: 20090828
  3. OLOPATADINE HCL [Concomitant]
     Dosage: TOTAL DAILY DOSE: 10 MG
     Dates: start: 20050428
  4. FLUOROMETHOLONE [Concomitant]
     Dosage: TOTAL DAILY DOSE: ADEQUATE DOSE
     Dates: start: 20100721
  5. BORIC ACID_INORGANIC SALTS [Concomitant]
     Dosage: TOTAL DAILY DOSE: ADEQUATE DOSE
     Dates: start: 20100721
  6. POVIDONE IODINE [Concomitant]
     Dosage: TOTAL DAILY DOSE: ADEQUATE DOSE, AS NEEDED
     Dates: start: 20080926
  7. CIMZIA [Suspect]
     Indication: RHEUMATOID ARTHRITIS
     Dosage: FROM 28/AUG/2009 -:400MG/2WEEKS;FROM ??/???/?? TO 04/DEC/2009:200MG/2WEEKS
     Route: 058
     Dates: start: 20091218, end: 20110808
  8. HYDROCORTISONE BUTYRATE [Concomitant]
     Dosage: TOTAL DAILY DOSE: ADEQUATE DOSE
     Dates: start: 20110518
  9. ISONIAZID [Concomitant]
     Dates: start: 20090805
  10. MIXED KILLED BACTERIA_HYDROCORTISONE [Concomitant]
     Dosage: TOTAL DAILY DOSE: ADEQUATE DOSE
     Dates: start: 20101220
  11. OMEPRAZOLE [Concomitant]
     Dates: start: 20090312
  12. LEVOFLOXACIN HYDRATE [Concomitant]
     Dosage: TOTAL DAILY DOSE: ADEQUATE DOSE
     Dates: start: 20100804

REACTIONS (2)
  - RADIUS FRACTURE [None]
  - PNEUMONIA [None]
